FAERS Safety Report 5027736-6 (Version None)
Quarter: 2006Q2

REPORT INFORMATION
  Report Type: 
  Country: None (occurrence: None)
  Receive Date: 20060428
  Receipt Date: 20060314
  Transmission Date: 20061013
  Serious: No
  Sender: FDA-Public Use
  Company Number: COT_0455_2006

PATIENT
  Age: 50 Year
  Sex: Female
  Weight: 112.0385 kg

DRUGS (19)
  1. VENTAVIS [Suspect]
     Indication: PULMONARY HYPERTENSION
     Dosage: 2.5 MCG 6XD IH
     Dates: start: 20050502, end: 20060101
  2. VENTAVIS [Suspect]
     Indication: PULMONARY HYPERTENSION
     Dosage: 2.5 MCG 5XD IH
     Dates: start: 20060101
  3. TRACLEER [Concomitant]
  4. MAGNESIUM OXIDE [Concomitant]
  5. ALLOPURINOL [Concomitant]
  6. SILDENAFIL [Concomitant]
  7. K-DUR 10 [Concomitant]
  8. HYDROCHLOROTHIAZIDE [Concomitant]
  9. DEMADEX [Concomitant]
  10. AVANDIA [Concomitant]
  11. ACETAMINOPHEN [Concomitant]
  12. ATIVAN [Concomitant]
  13. LANTUS [Concomitant]
  14. GLUCOTROL [Concomitant]
  15. DIGOXIN [Concomitant]
  16. HUMULIN [Concomitant]
  17. COUMADIN [Concomitant]
  18. NEXIUM [Concomitant]
  19. OXYGEN [Concomitant]

REACTIONS (1)
  - HYPOAESTHESIA FACIAL [None]
